FAERS Safety Report 19136700 (Version 1)
Quarter: 2021Q2

REPORT INFORMATION
  Report Type: Spontaneous
  Country: PL (occurrence: PL)
  Receive Date: 20210414
  Receipt Date: 20210414
  Transmission Date: 20210717
  Serious: Yes (Other)
  Sender: FDA-Public Use
  Company Number: PL-TEVA-2021-PL-1899478

PATIENT
  Age: 66 Year
  Sex: Female
  Weight: 101 kg

DRUGS (3)
  1. CALCIUM FOLINAS [Suspect]
     Active Substance: LEUCOVORIN CALCIUM
     Indication: COLON CANCER
     Dosage: 120 MG
     Route: 042
     Dates: start: 20180320
  2. FLUOROURACIL. [Suspect]
     Active Substance: FLUOROURACIL
     Indication: COLON CANCER
     Dosage: DOSE: 1260 MG? DRIP; 840 MG? BOLUS
     Route: 042
     Dates: start: 20180320
  3. IRINOTECAN [Suspect]
     Active Substance: IRINOTECAN
     Indication: COLON CANCER
     Dosage: 378 MG
     Route: 042
     Dates: start: 20180320

REACTIONS (1)
  - Neutropenia [Unknown]

NARRATIVE: CASE EVENT DATE: 20180403
